FAERS Safety Report 9701207 (Version 2)
Quarter: 2013Q4

REPORT INFORMATION
  Report Type: Spontaneous
  Country: US (occurrence: US)
  Receive Date: 20131121
  Receipt Date: 20131227
  Transmission Date: 20140711
  Serious: Yes (Death, Other)
  Sender: FDA-Public Use
  Company Number: US-INCYTE CORPORATION-2013IN002753

PATIENT
  Age: 73 Year
  Sex: Male
  Weight: 85.71 kg

DRUGS (12)
  1. JAKAFI [Suspect]
     Dosage: 10 MG, BID
     Route: 048
  2. JAKAFI [Suspect]
     Dosage: 10 MG, BID
     Route: 048
     Dates: start: 201308, end: 201309
  3. AMICOR                             /00894002/ [Concomitant]
  4. EXJADE [Concomitant]
  5. FUROSEMIDE [Concomitant]
  6. METOPROLOL [Concomitant]
  7. OMEPRAZOLE [Concomitant]
  8. NORVASC [Concomitant]
  9. VITAMIN D3 [Concomitant]
  10. HUMALIN [Concomitant]
  11. ASMANEX [Concomitant]
  12. AMIODARONE [Concomitant]

REACTIONS (4)
  - Death [Fatal]
  - Pancytopenia [Unknown]
  - Biliary sepsis [Unknown]
  - Performance status decreased [Unknown]
